FAERS Safety Report 4797029-0 (Version None)
Quarter: 2005Q4

REPORT INFORMATION
  Report Type: 
  Country: None (occurrence: None)
  Receive Date: 20051013
  Receipt Date: 20051003
  Transmission Date: 20060501
  Serious: Yes (Other)
  Sender: FDA-Public Use
  Company Number: US-MERCK-0510USA02188

PATIENT
  Age: 61 Year
  Sex: Male
  Weight: 91 kg

DRUGS (5)
  1. VIOXX [Suspect]
     Indication: ARTHRITIS
     Route: 048
     Dates: start: 19990901, end: 20020402
  2. METHOCARBAMOL [Concomitant]
     Route: 065
  3. LIPITOR [Concomitant]
     Route: 065
  4. TOLAZAMIDE [Concomitant]
     Route: 065
  5. RANITIDINE [Concomitant]
     Route: 065

REACTIONS (1)
  - MYOCARDIAL INFARCTION [None]
